FAERS Safety Report 4554664-2 (Version None)
Quarter: 2004Q4

REPORT INFORMATION
  Report Type: 
  Country: None (occurrence: None)
  Receive Date: 20041227
  Receipt Date: 20041001
  Transmission Date: 20050328
  Serious: No
  Sender: FDA-Public Use
  Company Number: US093940

PATIENT
  Age: 80 Year
  Sex: Male

DRUGS (6)
  1. SENSIPAR [Suspect]
     Indication: HYPERPARATHYROIDISM SECONDARY
     Dosage: 30 MG, 1 IN 1 DAYS
     Dates: start: 20040913, end: 20040927
  2. EPOGEN [Concomitant]
  3. LOSARTAN POTASSIUM [Concomitant]
  4. SEVELAMER HCL [Concomitant]
  5. NIFEDIPINE [Concomitant]
  6. DOXERCALCEROL [Concomitant]

REACTIONS (2)
  - ANOREXIA [None]
  - ASTHENIA [None]
